FAERS Safety Report 6067482-3 (Version None)
Quarter: 2009Q1

REPORT INFORMATION
  Report Type: 
  Country: None (occurrence: None)
  Receive Date: 20090205
  Receipt Date: 20090202
  Transmission Date: 20090719
  Serious: Yes (Death)
  Sender: FDA-Public Use
  Company Number: US-TEVA-184777USA

PATIENT
  Age: 60 Year
  Sex: Male

DRUGS (5)
  1. BLEOMYCIN SULFATE 15 UNITS/10 ML AND 30 UNITS/20ML [Suspect]
     Indication: BURKITT'S LYMPHOMA
     Route: 042
  2. DOXORUBICIN HCL [Suspect]
     Indication: BURKITT'S LYMPHOMA
     Route: 042
  3. VINCRISTINE [Suspect]
     Indication: BURKITT'S LYMPHOMA
     Route: 042
  4. CYCLOPHOSPHAMIDE [Suspect]
     Indication: BURKITT'S LYMPHOMA
     Route: 042
  5. METHOTREXATE [Suspect]
     Indication: BURKITT'S LYMPHOMA
     Route: 042

REACTIONS (1)
  - ACUTE MYELOMONOCYTIC LEUKAEMIA [None]
